FAERS Safety Report 8371312-4 (Version None)
Quarter: 2012Q2

REPORT INFORMATION
  Report Type: 
  Country: None (occurrence: None)
  Receive Date: 20120518
  Receipt Date: 20120320
  Transmission Date: 20120825
  Serious: No
  Sender: FDA-Public Use
  Company Number: US-ALEXION-A201200520

PATIENT

DRUGS (1)
  1. SOLIRIS [Suspect]
     Indication: HAEMOLYTIC URAEMIC SYNDROME
     Dosage: 1200 MG, Q10D
     Route: 042
     Dates: start: 20111101

REACTIONS (2)
  - PLATELET COUNT INCREASED [None]
  - BLOOD LACTATE DEHYDROGENASE INCREASED [None]
